FAERS Safety Report 21189338 (Version 1)
Quarter: 2022Q3

REPORT INFORMATION
  Report Type: Spontaneous
  Country: US (occurrence: None)
  Receive Date: 20220808
  Receipt Date: 20220808
  Transmission Date: 20221027
  Serious: No
  Sender: FDA-Public Use
  Company Number: None

PATIENT
  Age: 35 Year
  Sex: Female

DRUGS (1)
  1. REDITREX [Suspect]
     Active Substance: METHOTREXATE
     Indication: Psoriatic arthropathy
     Dosage: INJECT 25MG (1ML) SUBCUTANEOUSLY ONCE WEEKLY  ON THE SAME DAY EACH WEEK AS DIRECTED
     Route: 058
     Dates: start: 202207

REACTIONS (2)
  - Product dose omission in error [None]
  - COVID-19 [None]
